FAERS Safety Report 10191160 (Version 5)
Quarter: 2019Q4

REPORT INFORMATION
  Report Type: Report from Study
  Country: US (occurrence: US)
  Receive Date: 20140523
  Receipt Date: 20191014
  Transmission Date: 20200122
  Serious: Yes (Hospitalization, Disabling, Other)
  Sender: FDA-Public Use
  Company Number: US-SA-FABR-1003248

PATIENT
  Age: 53 Year
  Sex: Male

DRUGS (2)
  1. AGALSIDASE BETA [Suspect]
     Active Substance: AGALSIDASE BETA
     Dosage: 70 Q1
     Route: 041
     Dates: start: 20030702
  2. AGALSIDASE BETA [Suspect]
     Active Substance: AGALSIDASE BETA
     Indication: FABRY^S DISEASE
     Dosage: 35 MG, Q1
     Route: 041
     Dates: start: 20030702

REACTIONS (9)
  - Pericardial fibrosis [Unknown]
  - Walking aid user [Not Recovered/Not Resolved]
  - Atrial fibrillation [Unknown]
  - Pain [Not Recovered/Not Resolved]
  - Left ventricular enlargement [Unknown]
  - Foot fracture [Unknown]
  - Renal transplant [Unknown]
  - Nasopharyngitis [Unknown]
  - Pyrexia [Recovered/Resolved]

NARRATIVE: CASE EVENT DATE: 20181029
